FAERS Safety Report 11861510 (Version 3)
Quarter: 2016Q1

REPORT INFORMATION
  Report Type: Spontaneous
  Country: JP (occurrence: JP)
  Receive Date: 20151222
  Receipt Date: 20160209
  Transmission Date: 20160526
  Serious: Yes (Hospitalization, Other)
  Sender: FDA-Public Use
  Company Number: JP-SA-2015SA195517

PATIENT
  Age: 71 Year
  Sex: Female

DRUGS (5)
  1. MABCAMPATH [Suspect]
     Active Substance: ALEMTUZUMAB
     Route: 042
     Dates: start: 20160115, end: 20160115
  2. MABCAMPATH [Suspect]
     Active Substance: ALEMTUZUMAB
     Route: 042
     Dates: start: 20160114, end: 20160114
  3. MABCAMPATH [Suspect]
     Active Substance: ALEMTUZUMAB
     Route: 042
     Dates: start: 20151125
  4. MABCAMPATH [Suspect]
     Active Substance: ALEMTUZUMAB
     Route: 042
     Dates: start: 20160119, end: 20160129
  5. MABCAMPATH [Suspect]
     Active Substance: ALEMTUZUMAB
     Route: 042
     Dates: start: 20151124, end: 20151124

REACTIONS (5)
  - Chills [Recovered/Resolved]
  - White blood cell count decreased [Unknown]
  - Cytomegalovirus test positive [Recovered/Resolved]
  - Pyrexia [Recovered/Resolved]
  - Cytomegalovirus test positive [Unknown]

NARRATIVE: CASE EVENT DATE: 20151124
